FAERS Safety Report 5889158-5 (Version None)
Quarter: 2008Q3

REPORT INFORMATION
  Report Type: 
  Country: None (occurrence: None)
  Receive Date: 20080919
  Receipt Date: 20080912
  Transmission Date: 20090109
  Serious: Yes (Hospitalization)
  Sender: FDA-Public Use
  Company Number: FR-BAYER-200826310GPV

PATIENT
  Age: 78 Year
  Sex: Male

DRUGS (10)
  1. CIPROFLOXACIN HYDROCHLORIDE [Suspect]
     Indication: ANTIBIOTIC PROPHYLAXIS
     Dosage: UNIT DOSE: 500 MG
     Route: 048
     Dates: start: 20080616
  2. LOVENOX [Concomitant]
     Indication: DEEP VEIN THROMBOSIS
     Dosage: UNIT DOSE: 6000 IU
     Route: 058
  3. NIDREL [Concomitant]
     Indication: HYPERTENSION
     Dosage: UNIT DOSE: 20 MG
     Route: 048
  4. LIPANTHYL [Concomitant]
     Indication: HYPERCHOLESTEROLAEMIA
     Dosage: UNIT DOSE: 160 MG
     Route: 048
  5. LASILIX FAIBLE [Concomitant]
     Indication: HYPERTENSION
     Dosage: UNIT DOSE: 20 MG
     Route: 048
  6. PLAVIX [Concomitant]
     Indication: ARTERIAL THROMBOSIS
     Dosage: UNIT DOSE: 75 MG
     Route: 048
  7. PERMIXON [Concomitant]
     Indication: MICTURITION DISORDER
     Dosage: UNIT DOSE: 160 MG
     Route: 048
  8. ROCEPHIN [Concomitant]
     Indication: ANTIBIOTIC PROPHYLAXIS
     Dosage: UNIT DOSE: 1 G
     Route: 042
     Dates: start: 20080616, end: 20080619
  9. KAYEXALATE [Concomitant]
     Indication: HYPERKALAEMIA
     Route: 065
  10. IDARAC [Concomitant]
     Indication: ANALGESIC INTERVENTION SUPPORTIVE THERAPY
     Route: 065

REACTIONS (1)
  - HYPERKALAEMIA [None]
